APPROVED DRUG PRODUCT: DEXTROAMPHETAMINE SULFATE
Active Ingredient: DEXTROAMPHETAMINE SULFATE
Strength: 5MG
Dosage Form/Route: CAPSULE, EXTENDED RELEASE;ORAL
Application: A205077 | Product #001
Applicant: STRIDES PHARMA GLOBAL PTE LTD
Approved: Jun 21, 2019 | RLD: No | RS: No | Type: DISCN